FAERS Safety Report 26179355 (Version 1)
Quarter: 2025Q4

REPORT INFORMATION
  Report Type: Spontaneous
  Country: CA (occurrence: CA)
  Receive Date: 20251219
  Receipt Date: 20251219
  Transmission Date: 20260118
  Serious: Yes (Death, Hospitalization, Other)
  Sender: BIOVITRUM
  Company Number: CA-BIOVITRUM-2025-CA-011607

PATIENT
  Age: 49 Year
  Sex: Female

DRUGS (3)
  1. KINERET [Suspect]
     Active Substance: ANAKINRA
     Indication: Still^s disease
     Dosage: DAILY (OD)
     Route: 058
     Dates: start: 20250723
  2. KINERET [Suspect]
     Active Substance: ANAKINRA
     Indication: Rheumatoid arthritis
     Dosage: TWICE DAILY
     Route: 058
     Dates: start: 202508
  3. KINERET [Suspect]
     Active Substance: ANAKINRA
     Dosage: TWICE DAILY
     Route: 058
     Dates: start: 20250923, end: 20251213

REACTIONS (3)
  - Drug ineffective [Not Recovered/Not Resolved]
  - Off label use [Not Recovered/Not Resolved]
  - Death [Fatal]

NARRATIVE: CASE EVENT DATE: 20250801
